FAERS Safety Report 6253707-8 (Version None)
Quarter: 2009Q2

REPORT INFORMATION
  Report Type: 
  Country: None (occurrence: None)
  Receive Date: 20090630
  Receipt Date: 20090619
  Transmission Date: 20091009
  Serious: Yes (Hospitalization)
  Sender: FDA-Public Use
  Company Number: 2009SP013760

PATIENT
  Age: 80 Year
  Sex: Female
  Weight: 78.5 kg

DRUGS (20)
  1. TEMOZOLOMIDE [Suspect]
     Indication: GLIOBLASTOMA
     Dosage: 75 MG/M2; PO, 150 MG/M2; PO
     Route: 048
     Dates: start: 20080728, end: 20080911
  2. TEMOZOLOMIDE [Suspect]
     Indication: GLIOBLASTOMA
     Dosage: 75 MG/M2; PO, 150 MG/M2; PO
     Route: 048
     Dates: start: 20081009
  3. ENZASTAURIN [Suspect]
     Indication: GLIOBLASTOMA
     Dosage: 250 MG; PO, 250 MG, PO
     Route: 048
     Dates: start: 20080728, end: 20080911
  4. ENZASTAURIN [Suspect]
     Indication: GLIOBLASTOMA
     Dosage: 250 MG; PO, 250 MG, PO
     Route: 048
     Dates: start: 20081008, end: 20081019
  5. ENZASTAURIN [Suspect]
     Indication: GLIOBLASTOMA
     Dosage: 250 MG; PO, 250 MG, PO
     Route: 048
     Dates: start: 20081101
  6. SIMVASTATIN (CON.) [Concomitant]
  7. AMIODARONE (CON.) [Concomitant]
  8. KEPPRA (CON.) [Concomitant]
  9. PROTONIX (CON.) [Concomitant]
  10. VICODIN (CON.) [Concomitant]
  11. KYTRIL (CON.) [Concomitant]
  12. DIOVAN (CON.) [Concomitant]
  13. SENOKOT (CON.) [Concomitant]
  14. MIRALAX (CON.) [Concomitant]
  15. DECADRON (CON.) [Concomitant]
  16. COLACE (CON.) [Concomitant]
  17. TOPROL XL (CON.) [Concomitant]
  18. LASIX (CON.) [Concomitant]
  19. KCL (CON.) [Concomitant]
  20. WELLBUTRIN (CON.) [Concomitant]

REACTIONS (10)
  - ACTIVITIES OF DAILY LIVING IMPAIRED [None]
  - ADRENAL INSUFFICIENCY [None]
  - ATRIAL FIBRILLATION [None]
  - ESCHERICHIA SEPSIS [None]
  - FATIGUE [None]
  - MALAISE [None]
  - MUSCULAR WEAKNESS [None]
  - PNEUMONIA [None]
  - THROMBOCYTOPENIA [None]
  - URINARY TRACT INFECTION [None]
